FAERS Safety Report 15917285 (Version 3)
Quarter: 2019Q2

REPORT INFORMATION
  Report Type: Report from Study
  Country: US (occurrence: US)
  Receive Date: 20190205
  Receipt Date: 20190401
  Transmission Date: 20190711
  Serious: Yes (Other)
  Sender: FDA-Public Use
  Company Number: US-ROCHE-2158762

PATIENT
  Age: 36 Year
  Sex: Female

DRUGS (8)
  1. OCREVUS [Suspect]
     Active Substance: OCRELIZUMAB
     Route: 042
     Dates: start: 20180802
  2. OCREVUS [Suspect]
     Active Substance: OCRELIZUMAB
     Route: 042
     Dates: start: 20190117, end: 20190117
  3. BENADRYL [Suspect]
     Active Substance: DIPHENHYDRAMINE HYDROCHLORIDE
     Indication: PRODUCT USED FOR UNKNOWN INDICATION
     Route: 065
  4. SOLU-MEDROL [Suspect]
     Active Substance: METHYLPREDNISOLONE SODIUM SUCCINATE
     Indication: PREMEDICATION
     Dosage: ONGOING: UNKNOWN
     Route: 065
  5. OCREVUS [Suspect]
     Active Substance: OCRELIZUMAB
     Indication: RELAPSING-REMITTING MULTIPLE SCLEROSIS
     Route: 042
     Dates: start: 20180719
  6. ZANTAC [Concomitant]
     Active Substance: RANITIDINE HYDROCHLORIDE
     Route: 065
  7. DIPHENHYDRAMINE. [Concomitant]
     Active Substance: DIPHENHYDRAMINE
  8. OMEPRAZOLE. [Concomitant]
     Active Substance: OMEPRAZOLE

REACTIONS (18)
  - Cough [Unknown]
  - Flushing [Unknown]
  - Skin ulcer [Recovered/Resolved]
  - Blood glucose increased [Unknown]
  - Throat tightness [Not Recovered/Not Resolved]
  - Urticaria [Unknown]
  - Swelling face [Unknown]
  - Dyspnoea [Unknown]
  - Pharyngeal swelling [Recovered/Resolved]
  - Influenza [Not Recovered/Not Resolved]
  - Hypertension [Not Recovered/Not Resolved]
  - Sluggishness [Not Recovered/Not Resolved]
  - Rash [Unknown]
  - Oral mucosal exfoliation [Not Recovered/Not Resolved]
  - Scar [Unknown]
  - Fatigue [Unknown]
  - Multiple sclerosis relapse [Unknown]
  - Dysphonia [Unknown]

NARRATIVE: CASE EVENT DATE: 20180719
